FAERS Safety Report 15463590 (Version 2)
Quarter: 2018Q4

REPORT INFORMATION
  Report Type: Spontaneous
  Country: IT (occurrence: IT)
  Receive Date: 20181004
  Receipt Date: 20181005
  Transmission Date: 20190204
  Serious: Yes (Hospitalization, Disabling, Other)
  Sender: FDA-Public Use
  Company Number: IT-PFIZER INC-2018398180

PATIENT
  Age: 57 Year
  Sex: Female

DRUGS (5)
  1. TRASTUZUMAB. [Suspect]
     Active Substance: TRASTUZUMAB
     Indication: BREAST CANCER FEMALE
     Dosage: UNK
     Route: 042
  2. CYCLOPHOSPHAMIDE. [Suspect]
     Active Substance: CYCLOPHOSPHAMIDE
     Indication: BREAST CANCER FEMALE
     Dosage: 12 CYCLES
     Route: 042
  3. CHLORHEXIDINE IN ALCOHOL [Concomitant]
     Indication: INFECTION PROPHYLAXIS
     Dosage: SINGLE-USE APPLICATOR
     Route: 061
  4. FLUOROURACIL. [Suspect]
     Active Substance: FLUOROURACIL
     Indication: BREAST CANCER FEMALE
     Dosage: 12 CYCLES
     Route: 042
  5. EPIRUBICIN HCL [Suspect]
     Active Substance: EPIRUBICIN HYDROCHLORIDE
     Indication: BREAST CANCER FEMALE
     Dosage: 12 CYCLES
     Route: 042

REACTIONS (9)
  - Dislocation of vertebra [Recovering/Resolving]
  - Muscle atrophy [Not Recovered/Not Resolved]
  - Gait apraxia [Not Recovered/Not Resolved]
  - Hypotonia [Unknown]
  - Spinal cord compression [Recovering/Resolving]
  - Intervertebral discitis [Recovering/Resolving]
  - Gait disturbance [Recovering/Resolving]
  - Staphylococcal infection [Unknown]
  - Sepsis [Unknown]
